FAERS Safety Report 12067883 (Version 1)
Quarter: 2016Q1

REPORT INFORMATION
  Report Type: Spontaneous
  Country: US (occurrence: US)
  Receive Date: 20160211
  Receipt Date: 20160211
  Transmission Date: 20160526
  Serious: No
  Sender: FDA-Public Use
  Company Number: US-SMITH AND NEPHEW, INC-2015SMT00129

PATIENT
  Sex: Female

DRUGS (1)
  1. REGRANEX [Suspect]
     Active Substance: BECAPLERMIN
     Indication: WOUND
     Dosage: UNK UNK, TWICE
     Route: 061

REACTIONS (4)
  - Application site discolouration [Unknown]
  - Application site erythema [Unknown]
  - Off label use [Recovered/Resolved]
  - Application site pain [Unknown]
